FAERS Safety Report 9979224 (Version 2)
Quarter: 2014Q1

REPORT INFORMATION
  Report Type: Report from Study
  Country: PR (occurrence: PR)
  Receive Date: 20140306
  Receipt Date: 20140306
  Transmission Date: 20141002
  Serious: No
  Sender: FDA-Public Use
  Company Number: PR-ABBVIE-13P-131-1168968-00

PATIENT
  Sex: Male

DRUGS (3)
  1. HUMIRA [Suspect]
     Indication: HIDRADENITIS
     Route: 058
     Dates: end: 2013
  2. KLONOPIN [Concomitant]
     Indication: ANXIETY
     Route: 048
  3. UNKNOWN MEDICATED SOAP [Concomitant]
     Indication: HIDRADENITIS
     Dosage: BATH ADDITIVE
     Route: 061

REACTIONS (1)
  - Drug ineffective [Unknown]
